FAERS Safety Report 14257471 (Version 1)
Quarter: 2017Q4

REPORT INFORMATION
  Report Type: Spontaneous
  Country: TW (occurrence: TW)
  Receive Date: 20171207
  Receipt Date: 20171207
  Transmission Date: 20180321
  Serious: Yes (Hospitalization, Other)
  Sender: FDA-Public Use
  Company Number: TW-VISTAPHARM, INC.-VER201711-001254

PATIENT
  Age: 49 Year
  Sex: Male

DRUGS (6)
  1. LAMOTRIGINE. [Concomitant]
     Active Substance: LAMOTRIGINE
     Indication: PARTIAL SEIZURES
  2. PHENYTOIN. [Suspect]
     Active Substance: PHENYTOIN
  3. LORAZEPAM. [Concomitant]
     Active Substance: LORAZEPAM
     Indication: PARTIAL SEIZURES
  4. PHENYTOIN. [Suspect]
     Active Substance: PHENYTOIN
  5. PHENYTOIN. [Suspect]
     Active Substance: PHENYTOIN
     Indication: PARTIAL SEIZURES
  6. PHENYTOIN. [Suspect]
     Active Substance: PHENYTOIN

REACTIONS (6)
  - Seizure [Recovering/Resolving]
  - Ataxia [Unknown]
  - Drug level decreased [Unknown]
  - Food interaction [Unknown]
  - Gait inability [Unknown]
  - Dizziness [Unknown]
